FAERS Safety Report 26066230 (Version 1)
Quarter: 2025Q4

REPORT INFORMATION
  Report Type: Spontaneous
  Country: KE (occurrence: KE)
  Receive Date: 20251119
  Receipt Date: 20251119
  Transmission Date: 20260117
  Serious: Yes (Death)
  Sender: PFIZER
  Company Number: KE-PFIZER INC-PV202500134908

PATIENT
  Age: 26 Year
  Sex: Female

DRUGS (1)
  1. SUTENT [Suspect]
     Active Substance: SUNITINIB MALATE
     Indication: Pancreatic neuroendocrine tumour
     Dosage: 1 X 50MG CAPSULE

REACTIONS (1)
  - Death [Fatal]
